FAERS Safety Report 9344344 (Version 1)
Quarter: 2013Q2

REPORT INFORMATION
  Report Type: Spontaneous
  Country: US (occurrence: None)
  Receive Date: 20130611
  Receipt Date: 20130611
  Transmission Date: 20140414
  Serious: Yes (Other)
  Sender: FDA-Public Use
  Company Number: None

PATIENT
  Age: 74 Year
  Sex: Male

DRUGS (1)
  1. ZYTIGA 250MG JANSSEN BIOTECH INC [Suspect]
     Indication: PROSTATE CANCER
     Route: 048
     Dates: start: 20130327

REACTIONS (1)
  - Blood glucose decreased [None]
